FAERS Safety Report 8856842 (Version 1)
Quarter: 2012Q4

REPORT INFORMATION
  Report Type: Spontaneous
  Country: US (occurrence: None)
  Receive Date: 20121023
  Receipt Date: 20121023
  Transmission Date: 20130627
  Serious: No
  Sender: FDA-Public Use
  Company Number: None

PATIENT
  Age: 41 Year
  Sex: Male
  Weight: 92.99 kg

DRUGS (2)
  1. MEFLOQUINE [Suspect]
     Indication: MALARIA PROPHYLAXIS
     Dosage: 250 mg 1/day for 4 days
     Dates: start: 19931007, end: 19940412
  2. MEFLOQUINE [Suspect]
     Indication: MALARIA PROPHYLAXIS
     Dosage: 250 mg   1/wk for 7 months

REACTIONS (8)
  - Anxiety [None]
  - Chest discomfort [None]
  - Dyspnoea [None]
  - Disturbance in attention [None]
  - Irritability [None]
  - Anger [None]
  - Asthenia [None]
  - Lethargy [None]
